FAERS Safety Report 19350568 (Version 1)
Quarter: 2021Q2

REPORT INFORMATION
  Report Type: Report from Study
  Country: None (occurrence: CA)
  Receive Date: 20210531
  Receipt Date: 20210531
  Transmission Date: 20210717
  Serious: Yes (Other)
  Sender: FDA-Public Use
  Company Number: CA-ABBVIE-21K-028-3926200-00

PATIENT
  Age: 50 Year
  Sex: Female

DRUGS (1)
  1. HUMIRA [Suspect]
     Active Substance: ADALIMUMAB
     Indication: CROHN^S DISEASE
     Route: 058
     Dates: start: 20200820, end: 202012

REACTIONS (3)
  - Intestinal perforation [Recovered/Resolved]
  - Colostomy closure [Recovered/Resolved]
  - Colostomy [Recovered/Resolved]

NARRATIVE: CASE EVENT DATE: 202012
